FAERS Safety Report 25913804 (Version 1)
Quarter: 2025Q4

REPORT INFORMATION
  Report Type: Spontaneous
  Country: PK (occurrence: US)
  Receive Date: 20251013
  Receipt Date: 20251013
  Transmission Date: 20260117
  Serious: Yes (Death, Hospitalization, Other)
  Sender: ALEXION PHARMACEUTICALS
  Company Number: US-009507513-2298268

PATIENT
  Age: 63 Year
  Sex: Female

DRUGS (1)
  1. LYNPARZA [Suspect]
     Active Substance: OLAPARIB
     Indication: Non-small cell lung cancer
     Dosage: UNK
     Route: 065

REACTIONS (8)
  - Pleural effusion [Fatal]
  - Nausea [Unknown]
  - Headache [Unknown]
  - Pharyngeal oedema [Fatal]
  - Diaphragmatic disorder [Fatal]
  - Total lung capacity decreased [Fatal]
  - Peptic ulcer [Unknown]
  - Pneumonia [Fatal]

NARRATIVE: CASE EVENT DATE: 20250301
